FAERS Safety Report 4778420-5 (Version None)
Quarter: 2005Q3

REPORT INFORMATION
  Report Type: 
  Country: None (occurrence: None)
  Receive Date: 20050923
  Receipt Date: 20050923
  Transmission Date: 20060218
  Serious: Yes (Hospitalization)
  Sender: FDA-Public Use
  Company Number: None

PATIENT
  Sex: Female
  Weight: 63.5036 kg

DRUGS (1)
  1. ORTHO EVRA [Suspect]
     Indication: CONTRACEPTION
     Dosage: 1 PATCH   Q WEEK X 3 WEEKS  TRANSDERMAL
     Route: 062
     Dates: start: 20050822, end: 20050913

REACTIONS (1)
  - DEEP VEIN THROMBOSIS [None]
